FAERS Safety Report 6197136-4 (Version None)
Quarter: 2009Q2

REPORT INFORMATION
  Report Type: 
  Country: None (occurrence: None)
  Receive Date: 20090518
  Receipt Date: 20090518
  Transmission Date: 20091009
  Serious: Yes (Life-Threatening, Other)
  Sender: FDA-Public Use
  Company Number: None

PATIENT
  Age: 51 Year
  Sex: Female
  Weight: 65.7716 kg

DRUGS (1)
  1. ZAZOLE VAGINAL CREAM 0.4% PHARMADERM [Suspect]
     Indication: FUNGAL INFECTION
     Dosage: 1 APPLICATOR FULL ONCE A NIGHT VAG
     Route: 067
     Dates: start: 20080702, end: 20080702

REACTIONS (6)
  - GINGIVAL SWELLING [None]
  - LIP SWELLING [None]
  - MALAISE [None]
  - OEDEMA MOUTH [None]
  - PARAESTHESIA ORAL [None]
  - SWOLLEN TONGUE [None]
